FAERS Safety Report 23145408 (Version 1)
Quarter: 2023Q4

REPORT INFORMATION
  Report Type: Spontaneous
  Country: US (occurrence: US)
  Receive Date: 20231103
  Receipt Date: 20231103
  Transmission Date: 20240110
  Serious: No
  Sender: FDA-Public Use
  Company Number: US-Covis Pharma GmbH-2023COV01779

PATIENT
  Age: 30 Year
  Sex: Male

DRUGS (7)
  1. RILUZOLE [Suspect]
     Active Substance: RILUZOLE
     Indication: Catatonia
     Route: 048
  2. MIRTAZAPINE [Suspect]
     Active Substance: MIRTAZAPINE
     Indication: Catatonia
  3. RISPERIDONE [Suspect]
     Active Substance: RISPERIDONE
     Indication: Obsessive-compulsive disorder
     Dosage: REGIMEN #1
  4. RISPERIDONE [Suspect]
     Active Substance: RISPERIDONE
     Indication: Intermittent explosive disorder
     Dosage: REGIMEN #2
  5. DIPHENHYDRAMINE [Suspect]
     Active Substance: DIPHENHYDRAMINE
     Indication: Catatonia
  6. CHLORPROMAZINE [Suspect]
     Active Substance: CHLORPROMAZINE
     Indication: Catatonia
  7. CLONAZEPAM [Suspect]
     Active Substance: CLONAZEPAM
     Indication: Catatonia

REACTIONS (2)
  - Weight increased [Unknown]
  - Off label use [Unknown]
